FAERS Safety Report 16325902 (Version 5)
Quarter: 2020Q1

REPORT INFORMATION
  Report Type: Spontaneous
  Country: JP (occurrence: JP)
  Receive Date: 20190517
  Receipt Date: 20200131
  Transmission Date: 20200409
  Serious: Yes (Death, Hospitalization)
  Sender: FDA-Public Use
  Company Number: JP-EISAI MEDICAL RESEARCH-EC-2019-056479

PATIENT
  Age: 83 Year
  Sex: Male

DRUGS (6)
  1. LENVIMA [Suspect]
     Active Substance: LENVATINIB
     Route: 048
     Dates: start: 20181211, end: 20190318
  2. LENVIMA [Suspect]
     Active Substance: LENVATINIB
     Dosage: 5 DAYS ON/2 DAYS OFF
     Route: 048
     Dates: start: 20190319, end: 20190514
  3. LENVIMA [Suspect]
     Active Substance: LENVATINIB
     Route: 048
     Dates: start: 20181113, end: 20181127
  4. THYRADIN S [Concomitant]
     Active Substance: LEVOTHYROXINE SODIUM
     Indication: HYPOTHYROIDISM
     Route: 065
     Dates: start: 20181018
  5. LENVIMA [Suspect]
     Active Substance: LENVATINIB
     Indication: HEPATOCELLULAR CARCINOMA
     Route: 048
     Dates: start: 20181004, end: 20181112
  6. MINERAL PREPARATIONS [Concomitant]
     Indication: ANAEMIA
     Dosage: DOSE AND FREQUENCY UNKNOWN
     Route: 065
     Dates: start: 20190226, end: 20190402

REACTIONS (5)
  - Epistaxis [Recovered/Resolved]
  - Hypothyroidism [Not Recovered/Not Resolved]
  - Proteinuria [Not Recovered/Not Resolved]
  - Decreased appetite [Recovered/Resolved]
  - Gastrointestinal haemorrhage [Fatal]

NARRATIVE: CASE EVENT DATE: 2018
